FAERS Safety Report 8198742-8 (Version None)
Quarter: 2012Q1

REPORT INFORMATION
  Report Type: 
  Country: None (occurrence: None)
  Receive Date: 20120309
  Receipt Date: 20120207
  Transmission Date: 20120608
  Serious: No
  Sender: FDA-Public Use
  Company Number: US-AMGEN-USASP2012008435

PATIENT
  Age: 68 Year
  Sex: Female

DRUGS (7)
  1. PROLIA [Suspect]
     Indication: OSTEOPOROSIS POSTMENOPAUSAL
     Dosage: 60 MG, Q6MO
     Dates: start: 20111212
  2. VAGIFEM [Concomitant]
     Dosage: UNK UNK, QWK
  3. VITAMIN D [Concomitant]
     Dosage: 1 IU, QD
  4. HYDROCHLOROTHIAZIDE [Concomitant]
     Dosage: 1 MG, QD
  5. POTASSIUM [Concomitant]
     Dosage: 10 MEQ, TID
  6. MULTI-VITAMIN [Concomitant]
     Dosage: UNK UNK, QD
  7. VITAMIN B COMPLEX CAP [Concomitant]
     Dosage: 1 MG, QD

REACTIONS (5)
  - RASH PRURITIC [None]
  - ARTHRALGIA [None]
  - RASH ERYTHEMATOUS [None]
  - BACK PAIN [None]
  - INFLUENZA [None]
